FAERS Safety Report 6037921-2 (Version None)
Quarter: 2009Q1

REPORT INFORMATION
  Report Type: 
  Country: None (occurrence: None)
  Receive Date: 20090114
  Receipt Date: 20090114
  Transmission Date: 20090719
  Serious: Yes (Other)
  Sender: FDA-Public Use
  Company Number: None

PATIENT
  Sex: Male
  Weight: 111.5849 kg

DRUGS (1)
  1. TALACEN [Suspect]
     Indication: PAIN IN EXTREMITY
     Dosage: 25-650 MG EVERY 6 TO 8 HRS. AS NEEDED
     Dates: start: 20081211

REACTIONS (3)
  - DIZZINESS [None]
  - MOTION SICKNESS [None]
  - NAUSEA [None]
